FAERS Safety Report 15167874 (Version 1)
Quarter: 2018Q3

REPORT INFORMATION
  Report Type: Spontaneous
  Country: US (occurrence: US)
  Receive Date: 20180719
  Receipt Date: 20180719
  Transmission Date: 20181010
  Serious: Yes (Life-Threatening, Hospitalization, Other)
  Sender: FDA-Public Use
  Company Number: US-B.I. PHARMACEUTICALS,INC./RIDGEFIELD-2018-BI-036787

PATIENT
  Age: 39 Year
  Sex: Male

DRUGS (1)
  1. PRADAXA [Suspect]
     Active Substance: DABIGATRAN ETEXILATE MESYLATE
     Indication: ISCHAEMIC STROKE
     Route: 065

REACTIONS (9)
  - Embolic stroke [Unknown]
  - Cardiac ventricular thrombosis [Recovered/Resolved]
  - Thalassaemia beta [Unknown]
  - Somnolence [Unknown]
  - Myoclonic epilepsy [Unknown]
  - Ischaemic stroke [Unknown]
  - Cerebrovascular accident [Unknown]
  - Brain oedema [Unknown]
  - Coronary artery occlusion [Unknown]
